FAERS Safety Report 13438970 (Version 1)
Quarter: 2017Q2

REPORT INFORMATION
  Report Type: Spontaneous
  Country: US (occurrence: US)
  Receive Date: 20170413
  Receipt Date: 20170413
  Transmission Date: 20170830
  Serious: No
  Sender: FDA-Public Use
  Company Number: US-ROCHE-715797

PATIENT
  Sex: Female
  Weight: 75.9 kg

DRUGS (3)
  1. XENICAL [Suspect]
     Active Substance: ORLISTAT
     Route: 048
  2. XENICAL [Suspect]
     Active Substance: ORLISTAT
     Indication: WEIGHT CONTROL
     Route: 048
  3. XENICAL [Suspect]
     Active Substance: ORLISTAT
     Route: 048

REACTIONS (1)
  - Weight increased [Unknown]
